FAERS Safety Report 13406252 (Version 2)
Quarter: 2017Q2

REPORT INFORMATION
  Report Type: Spontaneous
  Country: DK (occurrence: DK)
  Receive Date: 20170405
  Receipt Date: 20170526
  Transmission Date: 20170830
  Serious: Yes (Death, Hospitalization)
  Sender: FDA-Public Use
  Company Number: DK-SA-2017SA057542

PATIENT
  Age: 70 Year
  Sex: Female

DRUGS (1)
  1. RENAGEL [Suspect]
     Active Substance: SEVELAMER HYDROCHLORIDE
     Indication: HYPERPHOSPHATAEMIA
     Route: 048
     Dates: start: 20150629, end: 20170307

REACTIONS (13)
  - Crystal deposit intestine [Fatal]
  - Respiratory failure [Fatal]
  - Diarrhoea [Unknown]
  - Multiple organ dysfunction syndrome [Fatal]
  - Disseminated intravascular coagulation [Fatal]
  - Cardiovascular insufficiency [Fatal]
  - Intestinal perforation [Fatal]
  - Asthenia [Not Recovered/Not Resolved]
  - Rotavirus infection [Fatal]
  - Tubulointerstitial nephritis [Fatal]
  - Vomiting [Recovered/Resolved]
  - Small intestinal resection [Fatal]
  - Septic shock [Fatal]

NARRATIVE: CASE EVENT DATE: 201703
